FAERS Safety Report 6948796-9 (Version None)
Quarter: 2010Q3

REPORT INFORMATION
  Report Type: 
  Country: None (occurrence: None)
  Receive Date: 20100828
  Receipt Date: 20091202
  Transmission Date: 20110219
  Serious: No
  Sender: FDA-Public Use
  Company Number: US-ABBOTT-09P-163-0611912-00

PATIENT
  Sex: Male

DRUGS (4)
  1. NIASPAN [Suspect]
     Indication: BLOOD CHOLESTEROL INCREASED
     Dosage: AT BEDTIME
     Dates: start: 20091001
  2. SIMVASTATIN [Concomitant]
     Indication: PRODUCT USED FOR UNKNOWN INDICATION
  3. TIMOLOL [Concomitant]
     Indication: PRODUCT USED FOR UNKNOWN INDICATION
  4. DIOVAN HCT [Concomitant]
     Indication: PRODUCT USED FOR UNKNOWN INDICATION

REACTIONS (4)
  - ERYTHEMA [None]
  - NAUSEA [None]
  - THYROID DISORDER [None]
  - VOMITING [None]
